FAERS Safety Report 25304536 (Version 1)
Quarter: 2025Q2

REPORT INFORMATION
  Report Type: Spontaneous
  Country: TW (occurrence: TW)
  Receive Date: 20250513
  Receipt Date: 20250513
  Transmission Date: 20250717
  Serious: Yes (Other)
  Sender: REGENERON
  Company Number: TW-BAYER-2025A063554

PATIENT
  Age: 64 Year
  Sex: Female

DRUGS (2)
  1. EYLEA [Suspect]
     Active Substance: AFLIBERCEPT
     Indication: Product used for unknown indication
     Route: 031
  2. EYLEA [Suspect]
     Active Substance: AFLIBERCEPT
     Route: 031

REACTIONS (1)
  - Subretinal fluid [Unknown]
